FAERS Safety Report 9129041 (Version 1)
Quarter: 2013Q1

REPORT INFORMATION
  Report Type: Spontaneous
  Country: DE (occurrence: DE)
  Receive Date: 20130228
  Receipt Date: 20130228
  Transmission Date: 20140127
  Serious: Yes (Hospitalization)
  Sender: FDA-Public Use
  Company Number: DE-PFIZER INC-2013068102

PATIENT
  Age: 49 Year
  Sex: Female
  Weight: 30.4 kg

DRUGS (6)
  1. RIFAMPICIN [Suspect]
     Indication: PULMONARY TUBERCULOSIS
     Dosage: UNK
  2. POTASSIUM [Suspect]
     Dosage: UNK
  3. TOLVAPTAN [Interacting]
     Indication: HYPONATRAEMIA
     Dosage: UNK
  4. ISONIAZIDE [Concomitant]
     Indication: PULMONARY TUBERCULOSIS
     Dosage: UNK
  5. ETAMBUTOL [Concomitant]
     Indication: PULMONARY TUBERCULOSIS
  6. PYRAZINAMIDE [Concomitant]
     Indication: PULMONARY TUBERCULOSIS

REACTIONS (2)
  - Inappropriate antidiuretic hormone secretion [Recovered/Resolved]
  - Drug interaction [Unknown]
